FAERS Safety Report 6594479-7 (Version None)
Quarter: 2010Q1

REPORT INFORMATION
  Report Type: 
  Country: None (occurrence: None)
  Receive Date: 20100222
  Receipt Date: 20100119
  Transmission Date: 20100710
  Serious: No
  Sender: FDA-Public Use
  Company Number: US-BAYER-201010949BCC

PATIENT
  Age: 82 Year
  Sex: Female
  Weight: 57 kg

DRUGS (5)
  1. ALEVE (CAPLET) [Suspect]
     Indication: ARTHRITIS
     Dosage: TOOK ON UNKNOWN DATES OFF AND ON
     Route: 048
  2. ALEVE (CAPLET) [Suspect]
     Dosage: TOTAL DAILY DOSE: 220 MG  UNIT DOSE: 220 MG
     Route: 048
     Dates: start: 20100113
  3. LIPITOR [Concomitant]
     Route: 065
  4. CORTISONE [Concomitant]
     Route: 065
  5. CHOLESTEROL LOWERING MEDICATIONS [Concomitant]

REACTIONS (1)
  - ECCHYMOSIS [None]
